FAERS Safety Report 25075287 (Version 1)
Quarter: 2025Q1

REPORT INFORMATION
  Report Type: Spontaneous
  Country: IN (occurrence: IN)
  Receive Date: 20250313
  Receipt Date: 20250313
  Transmission Date: 20250409
  Serious: Yes (Other)
  Sender: CIPLA
  Company Number: IN-CIPLA LTD.-2025IN03009

PATIENT

DRUGS (4)
  1. ACYCLOVIR [Suspect]
     Active Substance: ACYCLOVIR
     Indication: Skin papilloma
     Route: 026
  2. ACYCLOVIR [Suspect]
     Active Substance: ACYCLOVIR
     Indication: Papilloma viral infection
  3. LIDOCAINE [Suspect]
     Active Substance: LIDOCAINE
     Indication: Skin papilloma
     Route: 026
  4. LIDOCAINE [Suspect]
     Active Substance: LIDOCAINE
     Indication: Papilloma viral infection

REACTIONS (2)
  - Thrombosis [Unknown]
  - Injection site extravasation [Unknown]
